FAERS Safety Report 6180568-8 (Version None)
Quarter: 2009Q2

REPORT INFORMATION
  Report Type: 
  Country: None (occurrence: None)
  Receive Date: 20090504
  Receipt Date: 20090504
  Transmission Date: 20091009
  Serious: Yes (Hospitalization)
  Sender: FDA-Public Use
  Company Number: None

PATIENT
  Age: 34 Year
  Sex: Female
  Weight: 100.6985 kg

DRUGS (7)
  1. NEURONTIN [Suspect]
     Indication: NEUROMYOPATHY
     Dosage: 12 DAILY ORAL
     Route: 048
     Dates: start: 20040328, end: 20060802
  2. NAPROXEN [Concomitant]
  3. ATENOLOL [Concomitant]
  4. LASIX [Concomitant]
  5. SIMVASTATIN [Concomitant]
  6. POTASSIUM CHLORIDE [Concomitant]
  7. ZOLOFT [Concomitant]

REACTIONS (6)
  - DEREALISATION [None]
  - INCORRECT DOSE ADMINISTERED [None]
  - LOSS OF CONSCIOUSNESS [None]
  - MONOPLEGIA [None]
  - SCIATIC NERVE NEUROPATHY [None]
  - SUICIDE ATTEMPT [None]
